FAERS Safety Report 5807640-3 (Version None)
Quarter: 2008Q3

REPORT INFORMATION
  Report Type: 
  Country: None (occurrence: None)
  Receive Date: 20080711
  Receipt Date: 20080428
  Transmission Date: 20090109
  Serious: Yes (Other)
  Sender: FDA-Public Use
  Company Number: US-ROCHE-563087

PATIENT

DRUGS (1)
  1. CEFTRIAXONE [Suspect]
     Indication: NEUROBORRELIOSIS
     Dosage: STOPPED WITHIN THE FIRST THREE WEEKS OF TREATMENT. FORM: INFUSION.
     Route: 042

REACTIONS (1)
  - THROMBOSIS [None]
